FAERS Safety Report 6233267-8 (Version None)
Quarter: 2009Q2

REPORT INFORMATION
  Report Type: 
  Country: None (occurrence: None)
  Receive Date: 20090612
  Receipt Date: 20090602
  Transmission Date: 20091009
  Serious: Yes (Death, Hospitalization)
  Sender: FDA-Public Use
  Company Number: US-WYE-H08529509

PATIENT
  Age: 31 Year
  Sex: Female
  Weight: 58.8 kg

DRUGS (13)
  1. TEMSIROLIMUS    (TEMSIROLIMUS) [Suspect]
     Indication: GLIOBLASTOMA MULTIFORME
     Dosage: 15 MG 1X PER 1 WK, INTRAVENOUS
     Route: 042
     Dates: start: 20080329, end: 20080329
  2. TEMSIROLIMUS    (TEMSIROLIMUS) [Suspect]
     Indication: GLIOBLASTOMA MULTIFORME
     Dosage: 15 MG 1X PER 1 WK, INTRAVENOUS
     Route: 042
     Dates: start: 20080428, end: 20080519
  3. TARCEVA (EERLOTINIB, TABLET) [Suspect]
     Indication: GLIOBLASTOMA MULTIFORME
     Dosage: 150 MG 1X PER 1 DAY, ORAL
     Route: 048
     Dates: start: 20080329, end: 20080402
  4. TARCEVA (EERLOTINIB, TABLET) [Suspect]
     Indication: GLIOBLASTOMA MULTIFORME
     Dosage: 150 MG 1X PER 1 DAY, ORAL
     Route: 048
     Dates: start: 20080428, end: 20080525
  5. DECADRON [Concomitant]
  6. KEPPRA [Concomitant]
  7. VICODIN [Concomitant]
  8. BCTRIM DS (SULFAMETHOXAZOLE/TRIMETHOPRIM) [Concomitant]
  9. METHYLPHENIDATE HCL [Concomitant]
  10. ATIVAN [Concomitant]
  11. PEPCID [Concomitant]
  12. SINEMET [Concomitant]
  13. ATORVASTATIN CALCIUM [Concomitant]

REACTIONS (10)
  - DERMATITIS ACNEIFORM [None]
  - ENCEPHALOMALACIA [None]
  - HEADACHE [None]
  - INCISION SITE COMPLICATION [None]
  - INTRACRANIAL HYPOTENSION [None]
  - RASH [None]
  - RASH PUSTULAR [None]
  - SUBDURAL HAEMATOMA [None]
  - WOUND COMPLICATION [None]
  - WOUND INFECTION BACTERIAL [None]
